FAERS Safety Report 10147214 (Version 3)
Quarter: 2014Q2

REPORT INFORMATION
  Report Type: Spontaneous
  Country: US (occurrence: US)
  Receive Date: 20140501
  Receipt Date: 20140612
  Transmission Date: 20141212
  Serious: No
  Sender: FDA-Public Use
  Company Number: US-FRI-1000066904

PATIENT
  Age: 51 Year
  Sex: Female
  Weight: 46 kg

DRUGS (1)
  1. ARMOUR THYROID [Suspect]
     Indication: AUTOIMMUNE THYROIDITIS
     Dosage: ONE DOSE
     Dates: start: 201404, end: 201404

REACTIONS (4)
  - Hypersensitivity [Recovered/Resolved]
  - Diarrhoea [Recovered/Resolved]
  - Abdominal pain [Recovered/Resolved]
  - Drug ineffective [Recovered/Resolved]
